FAERS Safety Report 19612920 (Version 1)
Quarter: 2021Q3

REPORT INFORMATION
  Report Type: Report from Study
  Country: AT (occurrence: AT)
  Receive Date: 20210727
  Receipt Date: 20210727
  Transmission Date: 20211014
  Serious: Yes (Other)
  Sender: FDA-Public Use
  Company Number: AT-TEVA-2021-AT-1935583

PATIENT
  Age: 82 Year
  Sex: Female
  Weight: 70 kg

DRUGS (14)
  1. EPORATIO [Concomitant]
     Active Substance: ERYTHROPOIETIN
     Dosage: ONGOING = NOT CHECKED
     Dates: start: 20191002, end: 20191218
  2. PACLITAXEL. [Suspect]
     Active Substance: PACLITAXEL
     Indication: HER2 POSITIVE BREAST CANCER
     Dosage: FREQUENCY: WEEKLY MOST RECENT DOSE PRIOR TO THE EVENT: 21/AUG/2019:UNIT DOSE:80MG/M2
     Route: 042
     Dates: start: 20190731, end: 20190814
  3. PERTUZUMAB. [Suspect]
     Active Substance: PERTUZUMAB
     Indication: HER2 POSITIVE BREAST CANCER
     Dosage: FREQUENCY: OTHER MOST RECENT DOSE PRIOR TO THE EVENT: 07/AUG/2019:UNIT DOSE:840MILLIGRAM
     Route: 042
     Dates: start: 20190731, end: 20190731
  4. LOPERAMID [Concomitant]
     Active Substance: LOPERAMIDE
     Indication: DIARRHOEA
     Dosage: ONGOING = NOT CHECKED
     Dates: start: 20190821, end: 20191030
  5. THIAMAZOL [Concomitant]
     Active Substance: METHIMAZOLE
     Dosage: ONGOING = NOT CHECKED
     Dates: start: 20191211, end: 20200618
  6. NOMEXOR [Concomitant]
     Active Substance: NEBIVOLOL HYDROCHLORIDE
     Dosage: ONGOING = CHECKED
     Dates: start: 20170305
  7. RAMIPRIL. [Concomitant]
     Active Substance: RAMIPRIL
     Dosage: ONGOING = NOT CHECKED
     Dates: start: 20190711, end: 20200618
  8. TRASTUZUMAB. [Suspect]
     Active Substance: TRASTUZUMAB
     Indication: HER2 POSITIVE BREAST CANCER
     Dosage: FREQUENCY: OTHER MOST RECENT DOSE PRIOR TO THE EVENT: 30/OCT/2019:UNIT DOSE:8MG/M2
     Route: 041
     Dates: start: 20190731, end: 20190731
  9. THROMBO ASS [Concomitant]
     Active Substance: ASPIRIN
     Dosage: ONGOING = CHECKED
     Dates: start: 20170305
  10. GALVUS [Concomitant]
     Active Substance: VILDAGLIPTIN
     Dosage: ONGOING = CHECKED
  11. FUROSEMID [Concomitant]
     Active Substance: FUROSEMIDE
     Dosage: ONGOING = NOT CHECKED
     Dates: start: 20191211, end: 20200305
  12. LOVENOX [Concomitant]
     Active Substance: ENOXAPARIN SODIUM
     Dosage: ONGOING = NOT CHECKED
     Dates: start: 20191008, end: 20191218
  13. ZOFRAN [Concomitant]
     Active Substance: ONDANSETRON HYDROCHLORIDE
     Dates: start: 20170726, end: 20200715
  14. HYDROCHLOROTHIAZID [Concomitant]
     Active Substance: HYDROCHLOROTHIAZIDE
     Dosage: ONGOING = NOT CHECKED
     Dates: start: 20190711, end: 20200616

REACTIONS (1)
  - Polyneuropathy [Recovered/Resolved]

NARRATIVE: CASE EVENT DATE: 20191120
